FAERS Safety Report 7884058-3 (Version None)
Quarter: 2011Q4

REPORT INFORMATION
  Report Type: 
  Country: None (occurrence: None)
  Receive Date: 20111102
  Receipt Date: 20111031
  Transmission Date: 20120403
  Serious: Yes (Other)
  Sender: FDA-Public Use
  Company Number: PHHY2011AU80089

PATIENT
  Sex: Female

DRUGS (1)
  1. CLOZARIL [Suspect]
     Dosage: 62.5 MG
     Dates: start: 20041020, end: 20110905

REACTIONS (2)
  - DEMENTIA [None]
  - PARKINSON'S DISEASE [None]
